FAERS Safety Report 12619091 (Version 1)
Quarter: 2016Q3

REPORT INFORMATION
  Report Type: Report from Study
  Country: KR (occurrence: KR)
  Receive Date: 20160803
  Receipt Date: 20160803
  Transmission Date: 20161109
  Serious: Yes (Hospitalization)
  Sender: FDA-Public Use
  Company Number: KR-CELGENEUS-KOR-2016064137

PATIENT
  Age: 66 Year
  Sex: Male
  Weight: 66.9 kg

DRUGS (96)
  1. DEXAMETHASONE. [Suspect]
     Active Substance: DEXAMETHASONE
     Route: 041
     Dates: start: 20160630, end: 20160630
  2. DEXAMETHASONE. [Suspect]
     Active Substance: DEXAMETHASONE
     Route: 048
     Dates: start: 20160628, end: 20160628
  3. AZEPTIN [Concomitant]
     Indication: CHRONIC OBSTRUCTIVE PULMONARY DISEASE
     Route: 048
     Dates: start: 20160521, end: 201605
  4. GELMA [Concomitant]
     Indication: ABDOMINAL PAIN UPPER
     Dosage: 3 PKA
     Route: 048
     Dates: start: 20160526, end: 20160526
  5. KALIMATE [Concomitant]
     Active Substance: CALCIUM POLYSTYRENE SULFONATE
     Dosage: 18 TABLET
     Route: 048
     Dates: start: 20160511, end: 20160511
  6. K-CONTIN [Concomitant]
     Indication: PROPHYLAXIS
     Dosage: 1
     Route: 048
     Dates: start: 20160526, end: 20160526
  7. NORVASC [Concomitant]
     Active Substance: AMLODIPINE BESYLATE
     Route: 048
     Dates: start: 20160611
  8. MAGMIL [Concomitant]
     Active Substance: MAGNESIUM HYDROXIDE
     Route: 048
     Dates: start: 20160611
  9. PENIRAMIN [Concomitant]
     Indication: BENIGN PROSTATIC HYPERPLASIA
     Dosage: 1AM
     Route: 041
     Dates: start: 20160609, end: 20160609
  10. PENIRAMIN [Concomitant]
     Indication: TRANSFUSION
     Dosage: 1AMP
     Route: 041
     Dates: start: 20160526, end: 20160526
  11. TRADJENTA [Concomitant]
     Active Substance: LINAGLIPTIN
     Indication: DIABETES MELLITUS
     Route: 048
     Dates: start: 20160608
  12. LEUKOCYTE POOR PACKED RBC [Concomitant]
     Route: 041
     Dates: start: 20160616, end: 20160616
  13. ATACAND [Concomitant]
     Active Substance: CANDESARTAN CILEXETIL
     Indication: HYPERTENSION
     Route: 048
     Dates: start: 20160521
  14. AZEPTIN [Concomitant]
     Route: 048
     Dates: start: 20160623, end: 20160625
  15. CEFOLATAM [Concomitant]
     Active Substance: CEFOPERAZONE SODIUM\SULBACTAM SODIUM
     Indication: BENIGN PROSTATIC HYPERPLASIA
     Dosage: 2 VIAL
     Route: 041
     Dates: start: 20160520, end: 20160530
  16. ADALAT [Concomitant]
     Active Substance: NIFEDIPINE
     Indication: HYPERTENSION
     Route: 048
     Dates: start: 20160512, end: 20160512
  17. LASIX [Concomitant]
     Active Substance: FUROSEMIDE
     Indication: BENIGN PROSTATIC HYPERPLASIA
     Dosage: 1
     Route: 041
     Dates: start: 20160517, end: 20160517
  18. KLENZO [Concomitant]
     Indication: MOUTH ULCERATION
     Dosage: 1
     Route: 065
     Dates: start: 20160519, end: 20160519
  19. HEALTHCAL TAT [Concomitant]
     Indication: MINERAL SUPPLEMENTATION
     Route: 048
     Dates: start: 20160609
  20. REVLIMID [Suspect]
     Active Substance: LENALIDOMIDE
     Indication: PLASMA CELL MYELOMA
     Route: 048
     Dates: start: 20160512, end: 20160602
  21. ATACAND [Concomitant]
     Active Substance: CANDESARTAN CILEXETIL
     Route: 048
     Dates: start: 20160611
  22. BANAN [Concomitant]
     Active Substance: CEFPODOXIME PROXETIL
     Indication: PROPHYLAXIS
     Route: 048
     Dates: start: 20160530, end: 20160606
  23. FURIX [Concomitant]
     Active Substance: FUROSEMIDE
     Indication: URINARY TRACT INFECTION
     Dosage: 1
     Route: 048
     Dates: start: 20160519, end: 20160519
  24. FURIX [Concomitant]
     Active Substance: FUROSEMIDE
     Route: 048
     Dates: start: 20160611
  25. HARNAL [Concomitant]
     Active Substance: TAMSULOSIN HYDROCHLORIDE
     Indication: BENIGN PROSTATIC HYPERPLASIA
     Dosage: 4 TABLET
     Route: 048
     Dates: start: 20160516, end: 201605
  26. HINECHOL [Concomitant]
     Dosage: 9
     Route: 048
     Dates: start: 20160521, end: 20160522
  27. ONON [Concomitant]
     Active Substance: PRANLUKAST
     Indication: PROPHYLAXIS
     Route: 048
     Dates: start: 20160521, end: 20160530
  28. MAGMIL [Concomitant]
     Active Substance: MAGNESIUM HYDROXIDE
     Indication: CONSTIPATION
     Route: 048
     Dates: start: 20160514
  29. SEPTRIN [Concomitant]
     Active Substance: SULFAMETHOXAZOLE\TRIMETHOPRIM
     Route: 048
     Dates: start: 20160617
  30. TRITTICO [Concomitant]
     Active Substance: TRAZODONE HYDROCHLORIDE
     Indication: DEPRESSION
     Dosage: 4 TABLET
     Route: 048
     Dates: start: 20160514, end: 20160606
  31. TRITTICO [Concomitant]
     Active Substance: TRAZODONE HYDROCHLORIDE
     Route: 048
     Dates: start: 20160624, end: 20160624
  32. VENTOLIN [Concomitant]
     Active Substance: ALBUTEROL SULFATE
     Indication: CHRONIC OBSTRUCTIVE PULMONARY DISEASE
     Dosage: 3 AMP
     Route: 055
     Dates: start: 20160511, end: 20160512
  33. PENIRAMIN [Concomitant]
     Dosage: 1AMP
     Route: 041
     Dates: start: 20160704, end: 20160704
  34. EPOKINE [Concomitant]
     Route: 058
     Dates: start: 20160616, end: 20160616
  35. ATROPINE. [Concomitant]
     Active Substance: ATROPINE
     Dosage: 6 VIAL
     Route: 050
     Dates: start: 20160608, end: 20160608
  36. FLUNIL [Concomitant]
     Indication: PREMEDICATION
     Route: 041
     Dates: start: 20160617, end: 20160617
  37. REVLIMID [Suspect]
     Active Substance: LENALIDOMIDE
     Route: 048
     Dates: start: 20160620
  38. DEXAMETHASONE. [Suspect]
     Active Substance: DEXAMETHASONE
     Route: 041
     Dates: start: 20160620, end: 20160623
  39. DEXAMETHASONE. [Suspect]
     Active Substance: DEXAMETHASONE
     Route: 041
     Dates: start: 20160627, end: 20160627
  40. DEXAMETHASONE. [Suspect]
     Active Substance: DEXAMETHASONE
     Route: 048
     Dates: start: 20160718, end: 20160721
  41. DEXAMETHASONE. [Suspect]
     Active Substance: DEXAMETHASONE
     Route: 048
     Dates: start: 20160708, end: 20160708
  42. ANORO ELLIPTA [Concomitant]
     Active Substance: UMECLIDINIUM BROMIDE\VILANTEROL TRIFENATATE
     Indication: CHRONIC OBSTRUCTIVE PULMONARY DISEASE
     Dosage: 4
     Route: 055
     Dates: start: 20160530
  43. HYTRINE [Concomitant]
     Route: 048
     Dates: start: 20160524
  44. KALIMATE [Concomitant]
     Active Substance: CALCIUM POLYSTYRENE SULFONATE
     Indication: ENEMA ADMINISTRATION
     Route: 048
     Dates: start: 20160510, end: 20160510
  45. CRAVIT [Concomitant]
     Active Substance: LEVOFLOXACIN
     Route: 048
     Dates: start: 20160625
  46. RENALMIN [Concomitant]
     Indication: VITAMIN SUPPLEMENTATION
     Dosage: 200 MILLILITER
     Route: 048
     Dates: start: 20160523
  47. DUPHALAC [Concomitant]
     Active Substance: LACTULOSE
     Route: 048
     Dates: start: 20160511, end: 20160511
  48. TANTUM [Concomitant]
     Active Substance: BENZYDAMINE HYDROCHLORIDE
     Indication: MOUTH ULCERATION
     Route: 065
     Dates: start: 20160516, end: 20160516
  49. TARGIN PR [Concomitant]
     Indication: PAIN MANAGEMENT
     Route: 048
     Dates: start: 20160511, end: 20160606
  50. PENIRAMIN [Concomitant]
     Indication: LUNG INFECTION
     Dosage: 1AMP
     Route: 041
     Dates: start: 20160511, end: 20160511
  51. TRADJENTA [Concomitant]
     Active Substance: LINAGLIPTIN
     Route: 048
     Dates: start: 20160611, end: 20160621
  52. EPOKINE [Concomitant]
     Indication: ANAEMIA
     Route: 058
     Dates: start: 20160609, end: 20160609
  53. LEUKOCYTE POOR PACKED RBC [Concomitant]
     Route: 041
     Dates: start: 20160704, end: 20160704
  54. ASPIRIN PROTECT [Concomitant]
     Active Substance: ASPIRIN
     Indication: ANTICOAGULANT THERAPY
     Route: 048
     Dates: start: 20160521
  55. ASPIRIN PROTECT [Concomitant]
     Active Substance: ASPIRIN
     Route: 048
     Dates: start: 20160611
  56. AZEPTIN [Concomitant]
     Indication: RHINITIS ALLERGIC
     Dosage: 2
     Route: 048
     Dates: start: 20160620, end: 20160620
  57. FURIX [Concomitant]
     Active Substance: FUROSEMIDE
     Route: 048
     Dates: start: 20160609, end: 20160620
  58. HYTRINE [Concomitant]
     Indication: BENIGN PROSTATIC HYPERPLASIA
     Route: 048
     Dates: start: 20160518, end: 20160519
  59. HYTRINE [Concomitant]
     Route: 048
     Dates: start: 20160521, end: 20160523
  60. LANTUS SOLOSTAR [Concomitant]
     Active Substance: INSULIN GLARGINE
     Indication: DIABETES MELLITUS
     Dosage: 1 PEN
     Route: 058
     Dates: start: 20160530, end: 20160530
  61. CRAVIT [Concomitant]
     Active Substance: LEVOFLOXACIN
     Indication: LUNG INFECTION
     Dosage: 9
     Route: 048
     Dates: start: 20160511, end: 20160606
  62. TRITTICO [Concomitant]
     Active Substance: TRAZODONE HYDROCHLORIDE
     Indication: INSOMNIA
     Route: 048
     Dates: start: 20160625
  63. TRIDOL [Concomitant]
     Active Substance: TRAMADOL HYDROCHLORIDE
     Indication: PAIN MANAGEMENT
     Dosage: 1 AMP
     Route: 041
     Dates: start: 20160521, end: 20160521
  64. PENIRAMIN [Concomitant]
     Dosage: 1AMP
     Route: 041
     Dates: start: 20160707, end: 20160707
  65. HEALTHCAL TAT [Concomitant]
     Route: 048
     Dates: start: 20160611
  66. FLUNIL [Concomitant]
     Dosage: 6 VIAL
     Route: 050
     Dates: start: 20160608, end: 20160608
  67. DEXAMETHASONE. [Suspect]
     Active Substance: DEXAMETHASONE
     Indication: PLASMA CELL MYELOMA
     Route: 041
     Dates: start: 20160510, end: 20160620
  68. DEXAMETHASONE. [Suspect]
     Active Substance: DEXAMETHASONE
     Route: 041
     Dates: start: 20160707, end: 20160707
  69. FURIX [Concomitant]
     Active Substance: FUROSEMIDE
     Dosage: 60 MILLIGRAM
     Route: 048
     Dates: start: 20160521, end: 20160606
  70. MANNITOL. [Concomitant]
     Active Substance: MANNITOL
     Indication: ENEMA ADMINISTRATION
     Dosage: 1 BAG, 15%
     Route: 041
     Dates: start: 20160511, end: 20160511
  71. NORVASC [Concomitant]
     Active Substance: AMLODIPINE BESYLATE
     Indication: HYPERTENSION
     Dosage: 2 TABLET
     Route: 048
     Dates: start: 20160514
  72. DUPHALAC [Concomitant]
     Active Substance: LACTULOSE
     Indication: ENEMA ADMINISTRATION
     Route: 048
     Dates: start: 20160510, end: 20160510
  73. SODIUM BICARBONATE. [Concomitant]
     Active Substance: SODIUM BICARBONATE
     Indication: ELECTROLYTE IMBALANCE
     Dosage: 4 AMP
     Route: 041
     Dates: start: 20160510, end: 20160513
  74. LEUKOCYTE POOR PACKED RBC [Concomitant]
     Route: 041
     Dates: start: 20160707, end: 20160707
  75. MUCOSOL [Concomitant]
     Active Substance: ACETYLCYSTEINE
     Dosage: 6 VIAL
     Route: 050
     Dates: start: 20160608, end: 20160608
  76. BACTROBAN [Concomitant]
     Active Substance: MUPIROCIN\MUPIROCIN CALCIUM
     Indication: SKIN INFECTION
     Route: 065
     Dates: start: 20160511, end: 20160511
  77. HINECHOL [Concomitant]
     Indication: BENIGN PROSTATIC HYPERPLASIA
     Route: 048
     Dates: start: 20160518, end: 20160519
  78. HUMALOG [Concomitant]
     Active Substance: INSULIN LISPRO
     Indication: DIABETES MELLITUS
     Dosage: 1 PEN
     Route: 058
     Dates: start: 20160511, end: 20160511
  79. HUMALOG [Concomitant]
     Active Substance: INSULIN LISPRO
     Route: 058
     Dates: start: 20160624, end: 20160624
  80. HYTRINE [Concomitant]
     Route: 048
     Dates: start: 20160611
  81. LASIX [Concomitant]
     Active Substance: FUROSEMIDE
     Route: 041
     Dates: start: 20160511, end: 20160511
  82. POVIDONE [Concomitant]
     Active Substance: POVIDONE
     Indication: MOUTH ULCERATION
     Dosage: 1
     Route: 065
     Dates: start: 20160519, end: 20160519
  83. SEPTRIN [Concomitant]
     Active Substance: SULFAMETHOXAZOLE\TRIMETHOPRIM
     Indication: LUNG INFECTION
     Dosage: 4
     Route: 048
     Dates: start: 20160511, end: 20160620
  84. RENALMIN [Concomitant]
     Route: 048
     Dates: start: 20160611
  85. PENIRAMIN [Concomitant]
     Dosage: 1AMP
     Route: 041
     Dates: start: 20160616, end: 20160616
  86. DIAMICRON MR [Concomitant]
     Active Substance: GLICLAZIDE
     Indication: DIABETES MELLITUS
     Route: 048
     Dates: start: 20160608
  87. DEXAMETHASONE. [Suspect]
     Active Substance: DEXAMETHASONE
     Route: 041
     Dates: start: 20160510, end: 20160514
  88. FURIX [Concomitant]
     Active Substance: FUROSEMIDE
     Indication: BENIGN PROSTATIC HYPERPLASIA
     Route: 048
     Dates: start: 20160516, end: 20160518
  89. HUMALOG [Concomitant]
     Active Substance: INSULIN LISPRO
     Route: 058
     Dates: start: 20160623, end: 20160623
  90. NEURONTIN [Concomitant]
     Active Substance: GABAPENTIN
     Indication: PAIN MANAGEMENT
     Route: 048
     Dates: start: 20160515, end: 20160516
  91. DIAMICRON MR [Concomitant]
     Active Substance: GLICLAZIDE
     Route: 048
     Dates: start: 20160611
  92. LEUKOCYTE POOR PACKED RBC [Concomitant]
     Indication: ANAEMIA
     Dosage: 10 MILLIGRAM
     Route: 041
     Dates: start: 20160511, end: 20160526
  93. ATROPINE. [Concomitant]
     Active Substance: ATROPINE
     Indication: PREMEDICATION
     Route: 030
     Dates: start: 20160617, end: 20160617
  94. MIDAZOLAM [Concomitant]
     Active Substance: MIDAZOLAM\MIDAZOLAM HYDROCHLORIDE
     Indication: PREMEDICATION
     Route: 041
     Dates: start: 20160617, end: 20160617
  95. MIDAZOLAM [Concomitant]
     Active Substance: MIDAZOLAM\MIDAZOLAM HYDROCHLORIDE
     Dosage: 6 VIAL
     Route: 050
     Dates: start: 20160608, end: 20160608
  96. MUCOSOL [Concomitant]
     Active Substance: ACETYLCYSTEINE
     Indication: PRODUCTIVE COUGH
     Route: 048
     Dates: start: 20160616, end: 20160620

REACTIONS (2)
  - Pneumonia streptococcal [Recovered/Resolved]
  - Adrenal insufficiency [Recovered/Resolved]

NARRATIVE: CASE EVENT DATE: 20160607
